FAERS Safety Report 14151807 (Version 1)
Quarter: 2017Q4

REPORT INFORMATION
  Report Type: Spontaneous
  Country: US (occurrence: US)
  Receive Date: 20171031
  Receipt Date: 20171031
  Transmission Date: 20180321
  Serious: Yes (Disabling)
  Sender: FDA-Public Use
  Company Number: None

PATIENT
  Sex: Female
  Weight: 78.75 kg

DRUGS (6)
  1. HYZAAR [Concomitant]
     Active Substance: HYDROCHLOROTHIAZIDE\LOSARTAN POTASSIUM
  2. POTASIUM [Concomitant]
  3. METAPROLOL [Concomitant]
     Active Substance: METOPROLOL
  4. VITAMIN C [Concomitant]
     Active Substance: ASCORBIC ACID
  5. WARFARIN [Concomitant]
     Active Substance: WARFARIN
  6. LEVOFLOXACIN. [Suspect]
     Active Substance: LEVOFLOXACIN
     Indication: PNEUMONIA
     Dosage: ?          QUANTITY:4 TABLET(S);?
     Route: 048
     Dates: start: 20171005, end: 20171008

REACTIONS (7)
  - Pain in extremity [None]
  - Phlebitis [None]
  - Dysstasia [None]
  - Balance disorder [None]
  - Muscle spasms [None]
  - Tendon disorder [None]
  - Gait inability [None]

NARRATIVE: CASE EVENT DATE: 20171005
